FAERS Safety Report 10070452 (Version 5)
Quarter: 2015Q1

REPORT INFORMATION
  Report Type: Spontaneous
  Country: JP (occurrence: JP)
  Receive Date: 20140410
  Receipt Date: 20150225
  Transmission Date: 20150720
  Serious: Yes (Death, Other)
  Sender: FDA-Public Use
  Company Number: PHHY2014JP043041

PATIENT
  Age: 59 Year
  Sex: Male
  Weight: 72 kg

DRUGS (7)
  1. GLIVEC [Suspect]
     Active Substance: IMATINIB MESYLATE
     Indication: ADJUVANT THERAPY
     Dosage: 400 MG, UNK
     Route: 048
     Dates: start: 200906, end: 20091030
  2. SUTENT [Concomitant]
     Active Substance: SUNITINIB MALATE
     Indication: GASTROINTESTINAL STROMAL TUMOUR
     Route: 065
     Dates: start: 20100116
  3. PADRIN [Concomitant]
     Indication: ASCITES
     Route: 042
     Dates: start: 20110708
  4. GLIVEC [Suspect]
     Active Substance: IMATINIB MESYLATE
     Dates: start: 20110611
  5. GLIVEC [Suspect]
     Active Substance: IMATINIB MESYLATE
     Dosage: 400 MG, QD
     Route: 048
     Dates: start: 200906, end: 20091030
  6. GLIVEC [Suspect]
     Active Substance: IMATINIB MESYLATE
     Indication: GASTROINTESTINAL STROMAL TUMOUR
     Dosage: 400 MG, QD
     Route: 048
     Dates: start: 200807, end: 200808
  7. GLIVEC [Suspect]
     Active Substance: IMATINIB MESYLATE
     Dosage: 400 MG, QD
     Route: 048
     Dates: start: 200807, end: 200808

REACTIONS (5)
  - Metastases to liver [Fatal]
  - Skin exfoliation [Recovering/Resolving]
  - Drug ineffective [Unknown]
  - Gastrointestinal stromal tumour [Fatal]
  - Face oedema [Recovered/Resolved]

NARRATIVE: CASE EVENT DATE: 200808
